FAERS Safety Report 25857356 (Version 1)
Quarter: 2025Q3

REPORT INFORMATION
  Report Type: Spontaneous
  Country: EU (occurrence: EU)
  Receive Date: 20250929
  Receipt Date: 20250929
  Transmission Date: 20251020
  Serious: Yes (Other)
  Sender: AMGEN
  Company Number: EU-AMGEN-ITASP2025190126

PATIENT
  Age: 61 Year
  Sex: Male

DRUGS (6)
  1. XGEVA [Suspect]
     Active Substance: DENOSUMAB
     Indication: Prostate cancer metastatic
     Dosage: UNK UNK, QMO
     Route: 065
     Dates: start: 202007
  2. TAXOTERE [Concomitant]
     Active Substance: DOCETAXEL
     Indication: Prostate cancer metastatic
     Route: 065
     Dates: start: 202004, end: 202008
  3. DOCETAXEL [Concomitant]
     Active Substance: DOCETAXEL
     Indication: Prostate cancer metastatic
     Route: 065
     Dates: start: 202004, end: 202008
  4. LEUPROLIDE [Concomitant]
     Active Substance: LEUPROLIDE
     Indication: Prostate cancer metastatic
     Dosage: 11.25 MILLIGRAM PER MILLILITRE, Q3MO
     Route: 065
     Dates: start: 202004
  5. LEUPROLIDE [Concomitant]
     Active Substance: LEUPROLIDE
     Indication: Cancer hormonal therapy
  6. ENZALUTAMIDE [Concomitant]
     Active Substance: ENZALUTAMIDE
     Indication: Prostate cancer metastatic
     Dosage: 160 MILLIGRAM, QD
     Route: 065
     Dates: start: 202110, end: 2024

REACTIONS (2)
  - Prostate cancer metastatic [Unknown]
  - Hereditary optic atrophy [Unknown]

NARRATIVE: CASE EVENT DATE: 20230801
